FAERS Safety Report 8114773-8 (Version None)
Quarter: 2012Q1

REPORT INFORMATION
  Report Type: 
  Country: None (occurrence: None)
  Receive Date: 20120206
  Receipt Date: 20120131
  Transmission Date: 20120608
  Serious: Yes (Death)
  Sender: FDA-Public Use
  Company Number: US-CELGENEUS-163-21880-11120954

PATIENT
  Sex: Female

DRUGS (16)
  1. NEURONTIN [Concomitant]
  2. ZOLOFT [Concomitant]
  3. DULCOLAX [Concomitant]
  4. MULTI-VITAMINS [Concomitant]
  5. PERCOCET [Concomitant]
  6. PNEUMOVAX 23 [Concomitant]
  7. DECADRON [Concomitant]
  8. REVLIMID [Suspect]
     Indication: MULTIPLE MYELOMA
     Dosage: 10 MILLIGRAM
     Route: 048
     Dates: start: 20111111
  9. FLUZONE [Concomitant]
  10. VITAMIN B6 [Concomitant]
  11. DEXAMETHASONE [Concomitant]
  12. ATIVAN [Concomitant]
  13. VALTREX [Concomitant]
  14. VITAMIN D2 [Concomitant]
  15. CYTOXAN [Concomitant]
  16. VITAMIN B1 TAB [Concomitant]

REACTIONS (7)
  - MEGACOLON [None]
  - RENAL TUBULAR NECROSIS [None]
  - CARDIAC FAILURE CONGESTIVE [None]
  - ATRIAL FIBRILLATION [None]
  - ASPIRATION BRONCHIAL [None]
  - INTRA-ABDOMINAL HAEMATOMA [None]
  - RENAL FAILURE ACUTE [None]
